FAERS Safety Report 7880575-0 (Version None)
Quarter: 2011Q4

REPORT INFORMATION
  Report Type: 
  Country: None (occurrence: None)
  Receive Date: 20111101
  Receipt Date: 20100727
  Transmission Date: 20120403
  Serious: No
  Sender: FDA-Public Use
  Company Number: US-BAYER-201029145NA

PATIENT
  Sex: Male
  Weight: 111.36 kg

DRUGS (7)
  1. ULTRAVIST 300 [Suspect]
     Indication: COMPUTERISED TOMOGRAM
     Dosage: 150 ML, UNK
     Route: 042
  2. COUMADIN [Concomitant]
  3. FUROSEMIDE [Concomitant]
  4. ULTRAVIST 300 [Suspect]
     Indication: IRRITABLE BOWEL SYNDROME
  5. ULTRAVIST 300 [Suspect]
     Indication: CARCINOID TUMOUR
  6. COLCHICINE [Concomitant]
  7. VITAMIN D [Concomitant]

REACTIONS (2)
  - VOMITING [None]
  - NAUSEA [None]
